FAERS Safety Report 10641141 (Version 2)
Quarter: 2014Q4

REPORT INFORMATION
  Report Type: Spontaneous
  Country: GB (occurrence: None)
  Receive Date: 20141208
  Receipt Date: 20141229
  Transmission Date: 20150529
  Serious: Yes (Death)
  Sender: FDA-Public Use
  Company Number: 2651785

PATIENT
  Age: 78 Year
  Sex: Male
  Weight: 89.6 kg

DRUGS (3)
  1. MITOXANTRONE HYDROCHLORIDE. [Suspect]
     Active Substance: MITOXANTRONE HYDROCHLORIDE
     Indication: PROSTATE CANCER
     Dosage: NOT OTHERWISE SPEICIFIED
     Route: 042
     Dates: start: 20110627, end: 20130205
  2. ZOMETA [Concomitant]
     Active Substance: ZOLEDRONIC ACID
  3. ABIRATERONE [Concomitant]
     Active Substance: ABIRATERONE

REACTIONS (3)
  - Drug administration error [None]
  - Product quality issue [None]
  - Off label use [None]

NARRATIVE: CASE EVENT DATE: 20110627
